FAERS Safety Report 6649770-2 (Version None)
Quarter: 2010Q1

REPORT INFORMATION
  Report Type: 
  Country: None (occurrence: None)
  Receive Date: 20100322
  Receipt Date: 20100305
  Transmission Date: 20100710
  Serious: Yes (Life-Threatening)
  Sender: FDA-Public Use
  Company Number: 1-21561374

PATIENT
  Age: 79 Year
  Sex: Male
  Weight: 100.6985 kg

DRUGS (16)
  1. ROCURONIUM BROMIDE [Suspect]
     Indication: INDUCTION OF ANAESTHESIA
     Dosage: 30 MG, ONCE
     Dates: start: 20100225, end: 20100225
  2. FENTANYL-100 [Suspect]
     Indication: INDUCTION OF ANAESTHESIA
     Dosage: 100 MCG, ONCE
     Dates: start: 20100225, end: 20100225
  3. AMIODARONE HCL [Concomitant]
  4. LEXAPRO [Concomitant]
  5. ISOSORBIDE DINITRATE [Concomitant]
  6. FERROUS SULFATE TAB [Concomitant]
  7. COUMADIN [Concomitant]
  8. LIPITOR [Concomitant]
  9. KLOR-CON [Concomitant]
  10. GLYBURIDE [Concomitant]
  11. COREG [Concomitant]
  12. ALLOPURINOL [Concomitant]
  13. LASIX [Concomitant]
  14. MAGNESIUM OXIDE [Concomitant]
  15. VITAMIN D [Concomitant]
  16. FOSRENOL [Concomitant]

REACTIONS (2)
  - APNOEA [None]
  - RESPIRATORY FAILURE [None]
